FAERS Safety Report 5274802-6 (Version None)
Quarter: 2007Q1

REPORT INFORMATION
  Report Type: 
  Country: None (occurrence: None)
  Receive Date: 20070321
  Receipt Date: 20060824
  Transmission Date: 20070707
  Serious: Yes (Hospitalization)
  Sender: FDA-Public Use
  Company Number: 233017K06USA

PATIENT
  Age: 38 Year
  Sex: Female

DRUGS (1)
  1. REBIF [Suspect]
     Indication: MULTIPLE SCLEROSIS
     Dosage: 44 MCG, 3 IN 1 WEEKS
     Dates: start: 20040329, end: 20050101

REACTIONS (1)
  - SUICIDE ATTEMPT [None]
